FAERS Safety Report 5227167-X (Version None)
Quarter: 2007Q1

REPORT INFORMATION
  Report Type: 
  Country: None (occurrence: None)
  Receive Date: 20070201
  Receipt Date: 20070201
  Transmission Date: 20070707
  Serious: Yes (Death, Hospitalization)
  Sender: FDA-Public Use
  Company Number: None

PATIENT
  Age: 76 Year
  Sex: Male
  Weight: 72.5755 kg

DRUGS (1)
  1. INFLIXIMAB 300MG TIMES 2, THEN 200MG X ONE CENTECOR [Suspect]
     Indication: RHEUMATOID ARTHRITIS
     Dosage: 3 DOSES IV
     Route: 042
     Dates: start: 20061005, end: 20061124

REACTIONS (18)
  - ABDOMINAL PAIN [None]
  - ARTHRALGIA [None]
  - ASTHENIA [None]
  - AUTOIMMUNE DISORDER [None]
  - CHEST PAIN [None]
  - CSF PROTEIN INCREASED [None]
  - DIARRHOEA [None]
  - GUILLAIN-BARRE SYNDROME [None]
  - HYPOTONIA [None]
  - INAPPROPRIATE ANTIDIURETIC HORMONE SECRETION [None]
  - MALAISE [None]
  - MYELOPATHY [None]
  - NEUROPATHY [None]
  - ORAL INTAKE REDUCED [None]
  - PNEUMONIA [None]
  - PNEUMONIA ASPIRATION [None]
  - RESPIRATORY FAILURE [None]
  - VIRAL INFECTION [None]
